FAERS Safety Report 16114954 (Version 4)
Quarter: 2019Q2

REPORT INFORMATION
  Report Type: Spontaneous
  Country: GB (occurrence: GB)
  Receive Date: 20190325
  Receipt Date: 20190524
  Transmission Date: 20190711
  Serious: Yes (Other)
  Sender: FDA-Public Use
  Company Number: GB-009507513-1903GBR007413

PATIENT
  Age: 23 Year
  Sex: Female
  Weight: 76 kg

DRUGS (6)
  1. FERROUS SULFATE. [Concomitant]
     Active Substance: FERROUS SULFATE
     Dosage: 2 DF, QD
     Dates: start: 20190217
  2. BETAMETHASONE VALERATE. [Suspect]
     Active Substance: BETAMETHASONE VALERATE
     Dosage: APPLY THINLY 1-2 TIMES DAILY
     Route: 061
     Dates: start: 20190205
  3. CHLORPHENAMINE [Concomitant]
     Active Substance: CHLORPHENIRAMINE MALEATE
     Dosage: 3 DF, QD
     Dates: start: 20190206, end: 20190213
  4. FERROUS SULFATE. [Concomitant]
     Active Substance: FERROUS SULFATE
     Dosage: 2 DF, QD
     Dates: start: 20190218
  5. DERMOL (BENZALKONIUM CHLORIDE (+) CHLORHEXIDINE HYDROCHLORIDE (+) ISOP [Concomitant]
     Dosage: APPLY TO SKIN OR USE AS SOAP SUBSTITUTE
     Route: 061
     Dates: start: 20190206
  6. CHLORPHENAMINE [Concomitant]
     Active Substance: CHLORPHENIRAMINE MALEATE
     Dosage: 3 DF, QD
     Dates: start: 20190205, end: 20190212

REACTIONS (2)
  - Pallor [Recovering/Resolving]
  - Rash [Recovering/Resolving]

NARRATIVE: CASE EVENT DATE: 20190227
